FAERS Safety Report 6891235-7 (Version None)
Quarter: 2010Q3

REPORT INFORMATION
  Report Type: 
  Country: None (occurrence: None)
  Receive Date: 20100731
  Receipt Date: 20090702
  Transmission Date: 20110219
  Serious: No
  Sender: FDA-Public Use
  Company Number: US-PFIZER INC-2008043167

PATIENT
  Sex: Male
  Weight: 92.99 kg

DRUGS (8)
  1. LIPITOR [Suspect]
     Dosage: 20 MG, 1X/DAY
  2. LIPITOR [Suspect]
  3. TOPROL-XL [Concomitant]
     Indication: HYPERTENSION
     Dosage: UNK
     Route: 048
  4. ISOSORBIDE [Concomitant]
     Dosage: UNK
     Route: 048
  5. COLCHICINE [Concomitant]
     Indication: GOUT
     Dosage: UNK
  6. INDOCIN [Concomitant]
     Indication: GOUT
     Dosage: UNK
  7. ALLOPURINOL [Concomitant]
     Indication: GOUT
     Dosage: UNK
  8. ACETYLSALICYLIC ACID SRT [Concomitant]
     Indication: CARDIOVASCULAR EVENT PROPHYLAXIS
     Dosage: UNK

REACTIONS (2)
  - BLOOD CHOLESTEROL INCREASED [None]
  - LOW DENSITY LIPOPROTEIN INCREASED [None]
